FAERS Safety Report 13545759 (Version 2)
Quarter: 2017Q2

REPORT INFORMATION
  Report Type: Spontaneous
  Country: US (occurrence: US)
  Receive Date: 20170515
  Receipt Date: 20170515
  Transmission Date: 20170830
  Serious: Yes (Hospitalization, Other)
  Sender: FDA-Public Use
  Company Number: US-WARNER CHILCOTT-2012-002108

PATIENT
  Age: 60 Year
  Sex: Female

DRUGS (41)
  1. DOXEPIN [Concomitant]
     Active Substance: DOXEPIN
  2. TUMS                               /00751519/ [Concomitant]
  3. CENTRUM SILVER                     /01292501/ [Concomitant]
     Active Substance: MINERALS\VITAMINS
  4. FOSAMAX [Suspect]
     Active Substance: ALENDRONATE SODIUM
     Indication: OSTEOPOROSIS
     Dosage: 70 MG ONCE WEEKLY
     Route: 048
     Dates: start: 200603, end: 200909
  5. FOSAMAX [Suspect]
     Active Substance: ALENDRONATE SODIUM
     Dosage: 70 MG, UNKNOWN
     Route: 048
     Dates: start: 200105, end: 200401
  6. PREVACID [Concomitant]
     Active Substance: LANSOPRAZOLE
  7. CALCIUM [Concomitant]
     Active Substance: CALCIUM
  8. VITAMIN D [Concomitant]
     Active Substance: CHOLECALCIFEROL
  9. VITAMIN E                          /00110501/ [Concomitant]
     Active Substance: TOCOPHEROL
  10. OMEGA 3                            /06852001/ [Concomitant]
     Active Substance: OMEGA-3 FATTY ACIDS
  11. FOSAMAX [Suspect]
     Active Substance: ALENDRONATE SODIUM
     Indication: OSTEOPENIA
     Dosage: UNKNOWN DOSAGE ONCE WEEKLY
     Route: 048
     Dates: start: 2000, end: 2002
  12. RHINOCORT AQUA [Concomitant]
     Active Substance: BUDESONIDE
  13. DITROPAN XL [Concomitant]
     Active Substance: OXYBUTYNIN CHLORIDE
  14. ASPIRIN. [Concomitant]
     Active Substance: ASPIRIN
  15. CYMBALTA [Concomitant]
     Active Substance: DULOXETINE HYDROCHLORIDE
  16. ACTONEL [Suspect]
     Active Substance: RISEDRONATE SODIUM
     Indication: OSTEOPOROSIS PROPHYLAXIS
  17. BONIVA [Suspect]
     Active Substance: IBANDRONATE SODIUM
     Indication: OSTEOPOROSIS
     Dosage: 150 MG ONCE MONTHLY
     Route: 048
     Dates: start: 200610, end: 200911
  18. NASACORT [Concomitant]
     Active Substance: TRIAMCINOLONE ACETONIDE
  19. CLONIDINE. [Concomitant]
     Active Substance: CLONIDINE
  20. ACTONEL [Suspect]
     Active Substance: RISEDRONATE SODIUM
     Indication: OSTEOPOROSIS
     Dosage: 5 MG DAILY
     Route: 048
     Dates: start: 200402, end: 200602
  21. SEREVENT DISKUS [Concomitant]
     Active Substance: SALMETEROL XINAFOATE
  22. ULTRAM [Concomitant]
     Active Substance: TRAMADOL HYDROCHLORIDE
  23. GLUCOSAMINE [Concomitant]
     Active Substance: GLUCOSAMINE
  24. TAMOXIFEN [Concomitant]
     Active Substance: TAMOXIFEN
     Dosage: UNK
     Dates: start: 2000, end: 2005
  25. SYNTHROID [Concomitant]
     Active Substance: LEVOTHYROXINE SODIUM
  26. BEXTRA [Concomitant]
     Active Substance: VALDECOXIB
  27. EFFEXOR XR [Concomitant]
     Active Substance: VENLAFAXINE HYDROCHLORIDE
  28. MAGNESIUM [Concomitant]
     Active Substance: MAGNESIUM
  29. ACTONEL [Suspect]
     Active Substance: RISEDRONATE SODIUM
     Indication: OSTEOPOROSIS
     Dosage: UNKNOWN DOSAGE ONCE WEEKLY
     Route: 048
     Dates: start: 200206
  30. ACTONEL [Suspect]
     Active Substance: RISEDRONATE SODIUM
     Indication: OSTEOPOROSIS PROPHYLAXIS
  31. AZMACORT [Concomitant]
     Active Substance: TRIAMCINOLONE ACETONIDE
  32. PULMICORT TURBUHALER [Concomitant]
     Active Substance: BUDESONIDE
  33. BONIVA [Suspect]
     Active Substance: IBANDRONATE SODIUM
     Indication: OSTEOPENIA
  34. PREDNISONE. [Concomitant]
     Active Substance: PREDNISONE
     Indication: ASTHMA
  35. TESTOSTERONE. [Concomitant]
     Active Substance: TESTOSTERONE
  36. SINGULAIR [Concomitant]
     Active Substance: MONTELUKAST SODIUM
  37. MOBIC [Concomitant]
     Active Substance: MELOXICAM
  38. NEXIUM [Concomitant]
     Active Substance: ESOMEPRAZOLE MAGNESIUM
  39. VERAPAMIL [Concomitant]
     Active Substance: VERAPAMIL HYDROCHLORIDE
  40. ECHINACEA                          /01323501/ [Concomitant]
     Active Substance: ECHINACEA PURPUREA
  41. MULTIVITAMIN                       /00097801/ [Concomitant]
     Active Substance: VITAMINS

REACTIONS (9)
  - Pain [Unknown]
  - Low turnover osteopathy [Unknown]
  - Arthralgia [Not Recovered/Not Resolved]
  - Pathological fracture [Recovering/Resolving]
  - Bone disorder [Unknown]
  - Pain in extremity [Unknown]
  - Stress fracture [Recovering/Resolving]
  - Bone marrow oedema syndrome [Recovered/Resolved]
  - Femur fracture [Recovering/Resolving]

NARRATIVE: CASE EVENT DATE: 20100702
